FAERS Safety Report 24550665 (Version 1)
Quarter: 2024Q4

REPORT INFORMATION
  Report Type: Spontaneous
  Country: DE (occurrence: DE)
  Receive Date: 20241025
  Receipt Date: 20241025
  Transmission Date: 20250115
  Serious: No
  Sender: JAZZ
  Company Number: DE-JAZZ PHARMACEUTICALS-2024-DE-006062

PATIENT
  Age: 17 Year
  Sex: Female
  Weight: 110 kg

DRUGS (1)
  1. DEFITELIO [Suspect]
     Active Substance: DEFIBROTIDE SODIUM
     Indication: Product used for unknown indication
     Dosage: 700 MILLIGRAM, FOUR TIMES DAILY

REACTIONS (1)
  - Off label use [Unknown]
